FAERS Safety Report 7506623-5 (Version None)
Quarter: 2011Q2

REPORT INFORMATION
  Report Type: 
  Country: None (occurrence: None)
  Receive Date: 20110412
  Receipt Date: 20110121
  Transmission Date: 20111010
  Serious: Yes (Hospitalization, Other)
  Sender: FDA-Public Use
  Company Number: 2011027430

PATIENT
  Sex: Female

DRUGS (7)
  1. HIZENTRA [Suspect]
     Indication: IMMUNODEFICIENCY COMMON VARIABLE
     Dosage: 1X/WEEK SUBCUTANEOUS
     Route: 058
     Dates: start: 20101201
  2. HIZENTRA [Suspect]
     Indication: IMMUNODEFICIENCY COMMON VARIABLE
     Dosage: 1X/WEEK SUBCUTANEOUS
     Route: 058
     Dates: start: 20100831
  3. HIZENTRA [Suspect]
     Indication: IMMUNODEFICIENCY COMMON VARIABLE
     Dosage: 1X/WEEK SUBCUTANEOUS
     Route: 058
     Dates: start: 20101201
  4. VOLTAREN [Suspect]
  5. HYDROCHLOROTHIAZIDE [Concomitant]
  6. LASIX [Concomitant]
  7. COZAAR [Concomitant]

REACTIONS (2)
  - BLOOD CREATININE ABNORMAL [None]
  - RENAL FAILURE [None]
